FAERS Safety Report 8084530 (Version 3)
Quarter: 2015Q4

REPORT INFORMATION
  Report Type: Spontaneous
  Country: US (occurrence: US)
  Receive Date: 20110810
  Receipt Date: 20151207
  Transmission Date: 20160305
  Serious: Yes (Hospitalization, Other)
  Sender: FDA-Public Use
  Company Number: US-BAYER-2011-070124

PATIENT
  Age: 14 Year
  Sex: Female
  Weight: 77.1 kg

DRUGS (2)
  1. YASMIN [Suspect]
     Active Substance: DROSPIRENONE\ETHINYL ESTRADIOL
     Indication: CONTRACEPTION
     Dosage: UNK
     Route: 048
     Dates: start: 200608, end: 200901
  2. OCELLA [Suspect]
     Active Substance: DROSPIRENONE\ETHINYL ESTRADIOL
     Indication: CONTRACEPTION
     Dosage: UNK
     Route: 048
     Dates: start: 200608, end: 200901

REACTIONS (9)
  - Anxiety [None]
  - Deformity [None]
  - Cardiac disorder [None]
  - Embolism arterial [None]
  - Anhedonia [None]
  - Depression [None]
  - Arrhythmia [None]
  - Injury [None]
  - Pain [None]

NARRATIVE: CASE EVENT DATE: 200609
